FAERS Safety Report 23765947 (Version 1)
Quarter: 2024Q2

REPORT INFORMATION
  Report Type: Spontaneous
  Country: JP (occurrence: JP)
  Receive Date: 20240421
  Receipt Date: 20240421
  Transmission Date: 20240715
  Serious: Yes (Other)
  Sender: FDA-Public Use
  Company Number: JP-002147023-NVSJ2024JP004752

PATIENT
  Age: 6 Month
  Sex: Female
  Weight: 8.5 kg

DRUGS (1)
  1. ZOLGENSMA [Suspect]
     Active Substance: ONASEMNOGENE ABEPARVOVEC-XIOI
     Indication: Spinal muscular atrophy
     Dosage: 1.1X10^14VG/KG
     Route: 041
     Dates: start: 20240410, end: 20240410

REACTIONS (3)
  - Decreased appetite [Unknown]
  - Malaise [Unknown]
  - Nausea [Unknown]

NARRATIVE: CASE EVENT DATE: 20240412
